FAERS Safety Report 14246147 (Version 1)
Quarter: 2017Q4

REPORT INFORMATION
  Report Type: Spontaneous
  Country: US (occurrence: None)
  Receive Date: 20171201
  Receipt Date: 20171201
  Transmission Date: 20180321
  Serious: No
  Sender: FDA-Public Use
  Company Number: None

PATIENT
  Sex: Female

DRUGS (1)
  1. IBRANCE [Suspect]
     Active Substance: PALBOCICLIB
     Indication: BREAST CANCER FEMALE
     Dosage: 100MG DAILY X 21 DAYS OF 28 DAUY CYCLE  PO
     Route: 048
     Dates: start: 20171124, end: 20171129

REACTIONS (3)
  - Rash [None]
  - Alopecia [None]
  - Ulcer [None]
